FAERS Safety Report 8310345-0 (Version None)
Quarter: 2012Q2

REPORT INFORMATION
  Report Type: 
  Country: None (occurrence: None)
  Receive Date: 20120425
  Receipt Date: 20120423
  Transmission Date: 20120825
  Serious: Yes (Death)
  Sender: FDA-Public Use
  Company Number: PHHO2012NL006277

PATIENT
  Sex: Female

DRUGS (5)
  1. LETROZOLE [Suspect]
     Indication: BREAST CANCER
     Dosage: 2.5 MG, QD
     Route: 048
     Dates: start: 20101124, end: 20120404
  2. SERTRALINE HYDROCHLORIDE [Concomitant]
     Indication: DEPRESSION
     Dosage: 50 MG, IDDI
     Route: 048
     Dates: start: 20110708, end: 20110721
  3. OXAZEPAM [Concomitant]
     Dosage: 10 MG, IDDI
     Route: 048
  4. SERTRALINE HYDROCHLORIDE [Concomitant]
     Dosage: 100 MG, IDDI
     Route: 048
     Dates: start: 20110722, end: 20110925
  5. SERTRALINE HYDROCHLORIDE [Concomitant]
     Dosage: 150 MG, IDDI
     Route: 048
     Dates: start: 20110926

REACTIONS (1)
  - COMPLETED SUICIDE [None]
